FAERS Safety Report 4466936-0 (Version None)
Quarter: 2004Q4

REPORT INFORMATION
  Report Type: 
  Country: None (occurrence: None)
  Receive Date: 20041001
  Receipt Date: 20040916
  Transmission Date: 20050328
  Serious: Yes (Death, Hospitalization)
  Sender: FDA-Public Use
  Company Number: 201039

PATIENT
  Age: 47 Year
  Sex: Female

DRUGS (1)
  1. AVONEX [Suspect]
     Indication: MULTIPLE SCLEROSIS
     Dates: start: 20000501

REACTIONS (6)
  - CARDIAC DISORDER [None]
  - CONSCIOUSNESS FLUCTUATING [None]
  - INCOHERENT [None]
  - LUNG DISORDER [None]
  - SEPSIS [None]
  - URINARY TRACT INFECTION [None]
